FAERS Safety Report 6057386-4 (Version None)
Quarter: 2009Q1

REPORT INFORMATION
  Report Type: 
  Country: None (occurrence: None)
  Receive Date: 20090126
  Receipt Date: 20090126
  Transmission Date: 20090719
  Serious: Yes (Hospitalization, Disabling, Other)
  Sender: FDA-Public Use
  Company Number: None

PATIENT
  Age: 41 Year
  Sex: Female
  Weight: 58.9676 kg

DRUGS (2)
  1. GADOLINIUM NOT KNOWN NOT KNOWN [Suspect]
     Indication: NUCLEAR MAGNETIC RESONANCE IMAGING
     Dates: start: 20070709, end: 20080223
  2. GADOLINIUM NOT KNOWN NOT KNOWN [Suspect]
     Indication: UTERINE LEIOMYOMA
     Dates: start: 20070709, end: 20080223

REACTIONS (14)
  - ARTHRALGIA [None]
  - BONE PAIN [None]
  - DIZZINESS [None]
  - ERYTHEMA [None]
  - HEADACHE [None]
  - HYPOKINESIA [None]
  - HYPOTENSION [None]
  - INJECTION SITE PAIN [None]
  - MYALGIA [None]
  - NAUSEA [None]
  - PAIN [None]
  - PRURITUS [None]
  - RASH [None]
  - SKIN TIGHTNESS [None]
